FAERS Safety Report 4456721-8 (Version None)
Quarter: 2004Q3

REPORT INFORMATION
  Report Type: 
  Country: None (occurrence: None)
  Receive Date: 20040921
  Receipt Date: 20040908
  Transmission Date: 20050211
  Serious: No
  Sender: FDA-Public Use
  Company Number: 04P-167-0263546-00

PATIENT
  Age: 29 Year
  Sex: Male

DRUGS (1)
  1. EPILIM CHRONO TABLETS (DEPAKENE) SODIUM VALPROATE/VALPROIC ACID) (SODI [Suspect]
     Indication: EPILEPSY
     Dosage: 200 MG, 3 IN 1 D, ORAL
     Route: 048
     Dates: start: 20040101, end: 20040101

REACTIONS (5)
  - DRUG INEFFECTIVE [None]
  - EPILEPTIC AURA [None]
  - FATIGUE [None]
  - FEELING ABNORMAL [None]
  - MEDICATION ERROR [None]
